FAERS Safety Report 6919799-5 (Version None)
Quarter: 2010Q3

REPORT INFORMATION
  Report Type: 
  Country: None (occurrence: None)
  Receive Date: 20100810
  Receipt Date: 20100810
  Transmission Date: 20110219
  Serious: No
  Sender: FDA-Public Use
  Company Number: None

PATIENT
  Age: 55 Year
  Sex: Female
  Weight: 81.6475 kg

DRUGS (1)
  1. TYKERB [Suspect]
     Indication: MALIGNANT NIPPLE NEOPLASM
     Dosage: 1250MG DAILY PO
     Route: 048
     Dates: start: 20100726, end: 20100809

REACTIONS (7)
  - DIARRHOEA [None]
  - FATIGUE [None]
  - HEADACHE [None]
  - HEART RATE IRREGULAR [None]
  - LACRIMATION INCREASED [None]
  - PAIN OF SKIN [None]
  - SKIN DISORDER [None]
